FAERS Safety Report 5041665-3 (Version None)
Quarter: 2006Q2

REPORT INFORMATION
  Report Type: 
  Country: None (occurrence: None)
  Receive Date: 20060601
  Receipt Date: 20060223
  Transmission Date: 20061013
  Serious: No
  Sender: FDA-Public Use
  Company Number: 2006PV009178

PATIENT
  Age: 73 Year
  Sex: Female
  Weight: 82.5547 kg

DRUGS (6)
  1. BYETTA [Suspect]
     Indication: DIABETES MELLITUS NON-INSULIN-DEPENDENT
     Dosage: SEE IMAGE
     Route: 058
     Dates: start: 20051101, end: 20051206
  2. BYETTA [Suspect]
     Indication: DIABETES MELLITUS NON-INSULIN-DEPENDENT
     Dosage: SEE IMAGE
     Route: 058
     Dates: start: 20051207
  3. ACTOS /USA/ [Concomitant]
  4. GLIPIZIDE [Concomitant]
  5. ALLEGRA [Concomitant]
  6. FACTIVE [Concomitant]

REACTIONS (5)
  - DIZZINESS [None]
  - NAUSEA [None]
  - PARANASAL SINUS DISCOMFORT [None]
  - VOMITING [None]
  - WEIGHT DECREASED [None]
